FAERS Safety Report 14446963 (Version 3)
Quarter: 2018Q1

REPORT INFORMATION
  Report Type: Spontaneous
  Country: US (occurrence: US)
  Receive Date: 20180126
  Receipt Date: 20180208
  Transmission Date: 20180509
  Serious: Yes (Other)
  Sender: FDA-Public Use
  Company Number: US-PFIZER INC-2018033526

PATIENT
  Age: 65 Year
  Sex: Female

DRUGS (3)
  1. ADVIL [Suspect]
     Active Substance: IBUPROFEN
     Indication: PYREXIA
     Dosage: 200 MG, UNK
  2. ADVIL [Suspect]
     Active Substance: IBUPROFEN
     Indication: ANALGESIC THERAPY
     Dosage: 4 DF, SEVERAL TIMES A DAY FOR 3 OR 4 DAYS
     Route: 048
     Dates: start: 20180122
  3. ADVIL [Suspect]
     Active Substance: IBUPROFEN
     Indication: PAIN

REACTIONS (7)
  - Tongue exfoliation [Unknown]
  - Mouth haemorrhage [Unknown]
  - Condition aggravated [Unknown]
  - Pain [Unknown]
  - Intentional product use issue [Unknown]
  - Tongue blistering [Unknown]
  - Burn oral cavity [Unknown]

NARRATIVE: CASE EVENT DATE: 20180122
